FAERS Safety Report 17561808 (Version 4)
Quarter: 2020Q4

REPORT INFORMATION
  Report Type: Report from Study
  Country: US (occurrence: US)
  Receive Date: 20200319
  Receipt Date: 20201102
  Transmission Date: 20210113
  Serious: Yes (Death, Life-Threatening, Other)
  Sender: FDA-Public Use
  Company Number: NVSC2020US077254

PATIENT
  Age: 18 Year
  Sex: Male

DRUGS (4)
  1. FLUDARABIN [Concomitant]
     Active Substance: FLUDARABINE PHOSPHATE
     Indication: CHEMOTHERAPY
     Dosage: UNK
     Route: 065
  2. KYMRIAH [Suspect]
     Active Substance: TISAGENLECLEUCEL
     Dosage: UNK
     Route: 065
     Dates: start: 20190610
  3. CYCLOPHOSPHAMIDE. [Concomitant]
     Active Substance: CYCLOPHOSPHAMIDE
     Indication: CHEMOTHERAPY
     Dosage: UNK
     Route: 065
  4. KYMRIAH [Suspect]
     Active Substance: TISAGENLECLEUCEL
     Indication: LYMPHOCYTIC LEUKAEMIA
     Dosage: UNK
     Route: 065
     Dates: start: 20181119

REACTIONS (15)
  - Infection [Unknown]
  - Hypogammaglobulinaemia [Unknown]
  - Acute respiratory distress syndrome [Fatal]
  - Acute graft versus host disease [Unknown]
  - Human herpesvirus 6 infection [Unknown]
  - Lymphocyte count decreased [Unknown]
  - BK virus infection [Unknown]
  - Viral infection [Unknown]
  - Aspergillus infection [Unknown]
  - Herpes simplex [Unknown]
  - Adenovirus infection [Unknown]
  - Off label use [Unknown]
  - Respiratory syncytial virus infection [Unknown]
  - Fungal infection [Unknown]
  - White blood cell count decreased [Unknown]

NARRATIVE: CASE EVENT DATE: 20190610
